FAERS Safety Report 20051342 (Version 2)
Quarter: 2021Q4

REPORT INFORMATION
  Report Type: Spontaneous
  Country: DE (occurrence: DE)
  Receive Date: 20211110
  Receipt Date: 20211129
  Transmission Date: 20220303
  Serious: Yes (Other)
  Sender: FDA-Public Use
  Company Number: DE-SANOFI-00838335

PATIENT
  Sex: Male
  Weight: 120 kg

DRUGS (1)
  1. MYOZYME [Suspect]
     Active Substance: ALGLUCOSIDASE ALFA
     Dosage: 46 DF (AMPULES) (460 ML ENZYME IN 540 ML NACL 0.9% OVER 4 HOURS), QOW
     Route: 041
     Dates: start: 20060524

REACTIONS (3)
  - Nephrolithiasis [Unknown]
  - Renal pain [Unknown]
  - Adverse drug reaction [Not Recovered/Not Resolved]

NARRATIVE: CASE EVENT DATE: 20201001
